FAERS Safety Report 4278212-X (Version None)
Quarter: 2004Q1

REPORT INFORMATION
  Report Type: 
  Country: None (occurrence: None)
  Receive Date: 20040122
  Receipt Date: 20040122
  Transmission Date: 20041129
  Serious: Yes (Life-Threatening)
  Sender: FDA-Public Use
  Company Number: None

PATIENT
  Age: 35 Year
  Sex: Male
  Weight: 64 kg

DRUGS (2)
  1. FENTANYL [Suspect]
     Indication: POSTOPERATIVE ANALGESIA
     Dosage: 5 MCG/ML, 10ML/H, EPIDURAL
     Route: 008
     Dates: start: 20030724
  2. PROMETHAZINE [Suspect]
     Indication: NAUSEA
     Dosage: 12.5 MG IVP
     Route: 042
     Dates: start: 20030726

REACTIONS (5)
  - COMA [None]
  - DYSPNOEA [None]
  - NAUSEA [None]
  - OXYGEN SATURATION DECREASED [None]
  - VOMITING [None]
